FAERS Safety Report 14094442 (Version 1)
Quarter: 2017Q4

REPORT INFORMATION
  Report Type: Report from Study
  Country: US (occurrence: US)
  Receive Date: 20171016
  Receipt Date: 20171016
  Transmission Date: 20180321
  Serious: Yes (Death, Hospitalization, Other)
  Sender: FDA-Public Use
  Company Number: US-BAYER-2017-192227

PATIENT
  Age: 59 Year
  Sex: Female
  Weight: 70.3 kg

DRUGS (4)
  1. ADEMPAS [Suspect]
     Active Substance: RIOCIGUAT
     Indication: PULMONARY ARTERIAL HYPERTENSION
     Dosage: 2.5 MG, TID
     Route: 048
  2. OPSUMIT [Concomitant]
     Active Substance: MACITENTAN
     Dosage: UNK
  3. VELETRI [Concomitant]
     Active Substance: EPOPROSTENOL
     Dosage: UNK
  4. ADEMPAS [Suspect]
     Active Substance: RIOCIGUAT
     Indication: PULMONARY ARTERIAL HYPERTENSION
     Dosage: UNK
     Dates: start: 20160527

REACTIONS (7)
  - Cardiac arrest [None]
  - Anal incontinence [Unknown]
  - Diarrhoea [Unknown]
  - Panic attack [None]
  - Death [Fatal]
  - Confusional state [Unknown]
  - Urinary incontinence [None]

NARRATIVE: CASE EVENT DATE: 20171005
